FAERS Safety Report 14350880 (Version 2)
Quarter: 2018Q1

REPORT INFORMATION
  Report Type: Report from Study
  Country: GB (occurrence: GB)
  Receive Date: 20180104
  Receipt Date: 20180112
  Transmission Date: 20180509
  Serious: Yes (Hospitalization)
  Sender: FDA-Public Use
  Company Number: GB-EMD SERONO-9005191

PATIENT
  Sex: Male

DRUGS (2)
  1. REBIF [Suspect]
     Active Substance: INTERFERON BETA-1A
     Dosage: DRUG RE-INTRODUCED
     Route: 058
  2. REBIF [Suspect]
     Active Substance: INTERFERON BETA-1A
     Indication: MULTIPLE SCLEROSIS
     Dosage: MULTI DOSE CART
     Route: 058
     Dates: start: 20070521

REACTIONS (4)
  - Cystitis [Unknown]
  - Sepsis [Unknown]
  - Lung infection [Unknown]
  - Urinary tract infection [Unknown]
